FAERS Safety Report 20757415 (Version 2)
Quarter: 2024Q2

REPORT INFORMATION
  Report Type: Spontaneous
  Country: FR (occurrence: FR)
  Receive Date: 20220427
  Receipt Date: 20240503
  Transmission Date: 20240716
  Serious: Yes (Other)
  Sender: FDA-Public Use
  Company Number: None

PATIENT
  Age: 59 Year
  Sex: Female

DRUGS (3)
  1. KEYTRUDA [Suspect]
     Active Substance: PEMBROLIZUMAB
     Indication: Bronchial carcinoma
     Dosage: 26 DOSAGE FORM
     Route: 042
     Dates: start: 20200827, end: 20220331
  2. CARBOPLATIN [Suspect]
     Active Substance: CARBOPLATIN
     Indication: Bronchial carcinoma
     Dosage: UNK, 2 WEEK
     Route: 042
     Dates: start: 20200827, end: 20201103
  3. ALIMTA [Suspect]
     Active Substance: PEMETREXED DISODIUM
     Indication: Bronchial carcinoma
     Dosage: 26 DOSAGE FORM
     Route: 042
     Dates: start: 20200827, end: 20220331

REACTIONS (1)
  - Mixed deafness [Not Recovered/Not Resolved]

NARRATIVE: CASE EVENT DATE: 20210602
